FAERS Safety Report 8912809 (Version 1)
Quarter: 2012Q4

REPORT INFORMATION
  Report Type: 
  Country: FR (occurrence: FR)
  Receive Date: 20121115
  Receipt Date: 20121115
  Transmission Date: 20130627
  Serious: Yes (Hospitalization)
  Sender: FDA-Public Use
  Company Number: FR-B.I. PHARMACEUTICALS,INC./RIDGEFIELD-2012-FF-01602FF

PATIENT
  Age: 86 Year
  Sex: Female

DRUGS (2)
  1. PRADAXA [Suspect]
     Indication: ATRIAL FIBRILLATION
     Dosage: 220 mg
     Route: 048
  2. PRADAXA [Suspect]
     Dosage: 110 mg
     Route: 048

REACTIONS (4)
  - Haematuria [Recovered/Resolved]
  - Pyelonephritis [Recovered/Resolved]
  - Bladder disorder [Recovered/Resolved]
  - Urinary retention [Recovered/Resolved]
